FAERS Safety Report 8002810-0 (Version None)
Quarter: 2011Q4

REPORT INFORMATION
  Report Type: 
  Country: None (occurrence: None)
  Receive Date: 20111222
  Receipt Date: 20101222
  Transmission Date: 20120403
  Serious: No
  Sender: FDA-Public Use
  Company Number: US-GLAXOSMITHKLINE-A0888799A

PATIENT
  Sex: Male

DRUGS (3)
  1. AVODART [Suspect]
     Indication: PROSTATOMEGALY
     Route: 048
  2. LOVAZA [Concomitant]
  3. FLOMAX [Concomitant]

REACTIONS (3)
  - TACHYCARDIA [None]
  - BREAST PAIN [None]
  - GYNAECOMASTIA [None]
